FAERS Safety Report 12626432 (Version 3)
Quarter: 2016Q4

REPORT INFORMATION
  Report Type: Report from Study
  Country: US (occurrence: US)
  Receive Date: 20160805
  Receipt Date: 20161014
  Transmission Date: 20170207
  Serious: Yes (Hospitalization, Other)
  Sender: FDA-Public Use
  Company Number: US-BAYER-2016-145079

PATIENT
  Age: 38 Year
  Sex: Female

DRUGS (5)
  1. ADEMPAS [Suspect]
     Active Substance: RIOCIGUAT
     Indication: PULMONARY ARTERIAL HYPERTENSION
     Dosage: 1 MG, TID
     Route: 048
     Dates: start: 20160630
  2. ADEMPAS [Suspect]
     Active Substance: RIOCIGUAT
     Indication: PULMONARY ARTERIAL HYPERTENSION
     Dosage: 1.5 MG, TID
     Route: 048
  3. ADEMPAS [Suspect]
     Active Substance: RIOCIGUAT
     Indication: PULMONARY ARTERIAL HYPERTENSION
     Dosage: UNK
     Dates: start: 20160823
  4. ADEMPAS [Suspect]
     Active Substance: RIOCIGUAT
     Indication: PULMONARY ARTERIAL HYPERTENSION
     Dosage: 1 MG, TID
     Route: 048
     Dates: start: 20160716
  5. ADEMPAS [Suspect]
     Active Substance: RIOCIGUAT
     Indication: PULMONARY ARTERIAL HYPERTENSION
     Dosage: 2 MG, TID
     Route: 048
     Dates: start: 20160824

REACTIONS (22)
  - Dizziness [None]
  - Headache [None]
  - Vomiting [None]
  - Micturition frequency decreased [None]
  - Chest pain [None]
  - Skin tightness [None]
  - Dizziness postural [None]
  - Dyspnoea [None]
  - Central venous catheterisation [None]
  - Hospitalisation [None]
  - Dizziness [None]
  - Dyspnoea [None]
  - Oedema peripheral [None]
  - Systemic lupus erythematosus [None]
  - Chest pain [None]
  - Nausea [None]
  - Dyspnoea [None]
  - Headache [None]
  - Swelling [None]
  - Vomiting [None]
  - Constipation [None]
  - Weight increased [None]

NARRATIVE: CASE EVENT DATE: 20160722
